FAERS Safety Report 5253687-8 (Version None)
Quarter: 2007Q1

REPORT INFORMATION
  Report Type: 
  Country: None (occurrence: None)
  Receive Date: 20070226
  Receipt Date: 20070213
  Transmission Date: 20070707
  Serious: Yes (Other)
  Sender: FDA-Public Use
  Company Number: 236657

PATIENT
  Sex: Female

DRUGS (1)
  1. RITUXAN [Suspect]
     Indication: SJOGREN'S SYNDROME
     Dosage: 1000 MG, X2, INTRAVENOUS
     Route: 042
     Dates: start: 20060901

REACTIONS (1)
  - AMYOTROPHIC LATERAL SCLEROSIS [None]
